FAERS Safety Report 4936642-4 (Version None)
Quarter: 2006Q1

REPORT INFORMATION
  Report Type: 
  Country: None (occurrence: None)
  Receive Date: 20060302
  Receipt Date: 20060217
  Transmission Date: 20060701
  Serious: Yes (Other)
  Sender: FDA-Public Use
  Company Number: 2005BI021581

PATIENT
  Age: 45 Year
  Sex: Female
  Weight: 87.0906 kg

DRUGS (10)
  1. AVONEX [Suspect]
     Indication: MULTIPLE SCLEROSIS
     Dosage: 30 UG; QW; IM
     Route: 030
     Dates: start: 19980801
  2. AVONEX [Suspect]
     Indication: MULTIPLE SCLEROSIS
     Dosage: 30 UG; QW; IM
     Route: 030
     Dates: end: 20051001
  3. GLUCOPHAGE [Concomitant]
  4. ASPIRIN [Concomitant]
  5. NEURONTIN [Concomitant]
  6. EFFEXOR [Concomitant]
  7. LIPITOR [Concomitant]
  8. CITRICAL [Concomitant]
  9. ANTIVERT [Concomitant]
  10. ATIVAN [Concomitant]

REACTIONS (3)
  - ARTHRALGIA [None]
  - JOINT SWELLING [None]
  - SARCOIDOSIS [None]
